FAERS Safety Report 20695911 (Version 1)
Quarter: 2022Q2

REPORT INFORMATION
  Report Type: Spontaneous
  Country: US (occurrence: US)
  Receive Date: 20220411
  Receipt Date: 20220411
  Transmission Date: 20220721
  Serious: Yes (Other)
  Sender: FDA-Public Use
  Company Number: US-JNJFOC-20220403644

PATIENT
  Sex: Male

DRUGS (2)
  1. ERLEADA [Suspect]
     Active Substance: APALUTAMIDE
     Indication: Prostate cancer metastatic
     Route: 048
     Dates: start: 20210420
  2. ORGOVYX [Suspect]
     Active Substance: RELUGOLIX
     Indication: Prostate cancer metastatic
     Route: 065
     Dates: start: 20210402

REACTIONS (7)
  - Neuropathy peripheral [Unknown]
  - Weight increased [Recovering/Resolving]
  - Hot flush [Unknown]
  - Mobility decreased [Unknown]
  - Fatigue [Unknown]
  - Blood cholesterol increased [Recovering/Resolving]
  - Blood glucose increased [Unknown]
